FAERS Safety Report 5725209-6 (Version None)
Quarter: 2008Q2

REPORT INFORMATION
  Report Type: 
  Country: None (occurrence: None)
  Receive Date: 20080501
  Receipt Date: 20080422
  Transmission Date: 20081010
  Serious: Yes (Hospitalization)
  Sender: FDA-Public Use
  Company Number: B0517702A

PATIENT
  Age: 54 Year
  Sex: Female

DRUGS (9)
  1. AUGMENTIN '125' [Suspect]
     Dosage: 1G THREE TIMES PER DAY
     Route: 042
     Dates: start: 20080204, end: 20080211
  2. AUGMENTIN '125' [Suspect]
     Route: 048
     Dates: start: 20080129, end: 20080130
  3. VANCOMYCIN HCL [Suspect]
     Dosage: 2G PER DAY
     Route: 042
     Dates: start: 20080131, end: 20080211
  4. RIFAMPICIN [Concomitant]
     Route: 065
     Dates: start: 20080131, end: 20080204
  5. LEVOTHYROXINE SODIUM [Concomitant]
     Indication: DRUG USE FOR UNKNOWN INDICATION
     Route: 065
  6. LASILIX [Concomitant]
     Indication: DRUG USE FOR UNKNOWN INDICATION
     Route: 065
  7. SCOPODERM [Concomitant]
     Indication: DRUG USE FOR UNKNOWN INDICATION
     Route: 065
  8. TIENAM [Concomitant]
     Route: 065
     Dates: start: 20080211
  9. CIPROFLOXACIN HCL [Concomitant]
     Route: 065
     Dates: start: 20080211

REACTIONS (2)
  - DERMATITIS EXFOLIATIVE [None]
  - ERYTHEMA [None]
